FAERS Safety Report 8254882-6 (Version None)
Quarter: 2012Q2

REPORT INFORMATION
  Report Type: 
  Country: None (occurrence: None)
  Receive Date: 20120403
  Receipt Date: 20120322
  Transmission Date: 20120825
  Serious: Yes (Disabling, Other)
  Sender: FDA-Public Use
  Company Number: US-SANOFI-AVENTIS-2012SA007933

PATIENT
  Age: 88 Year
  Sex: Female
  Weight: 95 kg

DRUGS (3)
  1. LANTUS [Suspect]
     Dosage: DOSE:50 UNIT(S)
     Route: 058
  2. HUMALOG [Concomitant]
  3. SOLOSTAR [Suspect]

REACTIONS (3)
  - ARTHRITIS [None]
  - SCIATICA [None]
  - DISABILITY [None]
